FAERS Safety Report 3930656 (Version 7)
Quarter: 2020Q3

REPORT INFORMATION
  Report Type: Spontaneous
  Country: US (occurrence: None)
  Receive Date: 20030402
  Receipt Date: 20030902
  Transmission Date: 20201104
  Serious: Yes (Death, Hospitalization)
  Sender: FDA-Public Use
  Company Number: USA-2002-0001677

PATIENT
  Age: 41 Year
  Sex: Female
  Weight: 79.4 kg

DRUGS (48)
  1. CODEINE [Suspect]
     Active Substance: CODEINE
  2. QUETIAPINE FUMARATE. [Suspect]
     Active Substance: QUETIAPINE FUMARATE
  3. BACLOFEN. [Concomitant]
     Active Substance: BACLOFEN
  4. CORTISONE (CORTISONE) [Concomitant]
  5. OXYCONTIN [Suspect]
     Active Substance: OXYCODONE HYDROCHLORIDE
     Indication: PAIN
     Dosage: 10 MG
     Dates: start: 19980618
  6. OXYCONTIN [Suspect]
     Active Substance: OXYCODONE HYDROCHLORIDE
     Indication: PAIN
     Dosage: 20 MG
  7. RISPERIDAL [Concomitant]
     Active Substance: RISPERIDONE
  8. DONNATAL (ATROPINE SULFATE, HYOSCINE HYDROBROMIDE, HYOSCYAMINE SULFATE, PHENOBARBITAL) [Concomitant]
  9. AMBIEN [Concomitant]
     Active Substance: ZOLPIDEM TARTRATE
  10. AZMACORT (TRIAMCINOLONE ACETONIDE) INHALER [Concomitant]
  11. ALPRAZOLAM. [Suspect]
     Active Substance: ALPRAZOLAM
  12. METOCLOPRAMIDE. [Suspect]
     Active Substance: METOCLOPRAMIDE
  13. VITAMIN C [Concomitant]
     Active Substance: ASCORBIC ACID
  14. AXID [Concomitant]
     Active Substance: NIZATIDINE
  15. ZOCOR [Concomitant]
     Active Substance: SIMVASTATIN
  16. FLONASE [Concomitant]
     Active Substance: FLUTICASONE PROPIONATE
  17. BELLERGAL?S (BELLADONNA ALKALOIDS, ERGOTAMINE TARTRATE, PHENOBARBITAL) [Concomitant]
  18. TRANDATE [Concomitant]
     Active Substance: LABETALOL HYDROCHLORIDE
  19. ATARAX [Concomitant]
     Active Substance: HYDROXYZINE HYDROCHLORIDE
  20. CYCLOBENZAPRINE HYDROCHLORIDE. [Concomitant]
     Active Substance: CYCLOBENZAPRINE HYDROCHLORIDE
  21. ACIPHEX (RABEPRAZOLE SODIUM) TABLET [Concomitant]
  22. EFFEXOR [Suspect]
     Active Substance: VENLAFAXINE HYDROCHLORIDE
     Dosage: 75 MG, DAILY
  23. IBUPROFEN. [Concomitant]
     Active Substance: IBUPROFEN
  24. CELEXA [Concomitant]
     Active Substance: CITALOPRAM HYDROBROMIDE
  25. GLUCOTROL XL (GLIPIZIDE) TABLET [Concomitant]
  26. ALBUTEROL (SALBUTAMOL) INHALER [Concomitant]
  27. EPHEDRINE. [Suspect]
     Active Substance: EPHEDRINE
  28. PRILOSEC [Concomitant]
     Active Substance: OMEPRAZOLE MAGNESIUM
  29. DAYPRO [Concomitant]
     Active Substance: OXAPROZIN
  30. TRANDATE [Concomitant]
     Active Substance: LABETALOL HYDROCHLORIDE
  31. WEIGHT LOSS SUPPLEMENT (DOES NOT CODE) [Concomitant]
  32. ERGOBEL (NICERGOLINE) [Concomitant]
  33. NEURONTIN [Suspect]
     Active Substance: GABAPENTIN
     Dosage: 100 MG, TID
  34. CELEBREX [Concomitant]
     Active Substance: CELECOXIB
  35. MEDROL [Concomitant]
     Active Substance: METHYLPREDNISOLONE
  36. FIORICET [Concomitant]
     Active Substance: ACETAMINOPHEN\BUTALBITAL\CAFFEINE
  37. AMITRIPTYLINE (AMITRIPTYLINE) [Concomitant]
  38. CAPOTEN TABLET [Concomitant]
  39. SEROQUEL (QUETIAPINE) TABLET [Concomitant]
  40. PHENOBARBITAL (PHENOBARBITAL) [Concomitant]
     Active Substance: PHENOBARBITAL
  41. PROVENTIL TABLET (SALBUTAMOL SULFATE) [Concomitant]
  42. INSULIN NOS [Concomitant]
     Active Substance: INSULIN NOS
  43. HYDROCODONE BITARTRATE. [Suspect]
     Active Substance: HYDROCODONE BITARTRATE
  44. PSEUDOEPHEDRINE. [Suspect]
     Active Substance: PSEUDOEPHEDRINE HYDROCHLORIDE
  45. CLARITIN [Concomitant]
     Active Substance: LORATADINE
  46. PAXIL [Concomitant]
     Active Substance: PAROXETINE HYDROCHLORIDE
  47. MACRO ANTIOXIDANT (ASCORBIC ACID, CYSTINE, TOCOPHEROL, CALCIUM ASCORBATE, BETACAROTENE, MANAGANESE,) [Concomitant]
  48. AUGMENTIN [Concomitant]
     Active Substance: AMOXICILLIN\CLAVULANATE POTASSIUM

REACTIONS (47)
  - Night sweats [None]
  - Hilar lymphadenopathy [None]
  - Alopecia [None]
  - Flushing [None]
  - Influenza [None]
  - Lung disorder [None]
  - Pleurisy [None]
  - Pulmonary oedema [None]
  - Chest pain [None]
  - Dyspnoea [None]
  - Urinary incontinence [None]
  - Overdose [None]
  - Nervousness [None]
  - Pain [None]
  - Exfoliative rash [None]
  - Angiopathy [None]
  - Weight increased [None]
  - Anxiety [None]
  - Coma [None]
  - Hyperglycaemia [None]
  - Hyperventilation [None]
  - Pulse absent [None]
  - Troponin increased [None]
  - Peripheral arterial occlusive disease [None]
  - Diabetes mellitus [None]
  - Disturbance in attention [None]
  - Fatigue [None]
  - Nausea [None]
  - Pruritus [None]
  - Upper respiratory tract infection [None]
  - Portal tract inflammation [None]
  - Irritability [None]
  - Depressed mood [None]
  - Insomnia [None]
  - Asthenia [None]
  - Emphysema [None]
  - Finger deformity [None]
  - Pneumonia [None]
  - Somnolence [None]
  - Hyperhidrosis [None]
  - Rash pruritic [None]
  - Back pain [None]
  - Myocardial necrosis marker increased [None]
  - Drug ineffective [None]
  - Hypoxia [None]
  - Libido decreased [None]
  - Pulmonary congestion [None]

NARRATIVE: CASE EVENT DATE: 19980629
